FAERS Safety Report 17711494 (Version 1)
Quarter: 2020Q2

REPORT INFORMATION
  Report Type: Spontaneous
  Country: CA (occurrence: CA)
  Receive Date: 20200427
  Receipt Date: 20200427
  Transmission Date: 20200714
  Serious: Yes (Other)
  Sender: FDA-Public Use
  Company Number: CA-PFIZER INC-2020147879

PATIENT
  Age: 60 Year
  Sex: Female
  Weight: 113 kg

DRUGS (3)
  1. PREDNISONE. [Concomitant]
     Active Substance: PREDNISONE
     Dosage: 5 - 10MG QD (EVERY DAY)
  2. CODEINE [Concomitant]
     Active Substance: CODEINE
     Dosage: 2 TABS QD (EVERY DAY)
  3. SULFASALAZINE. [Suspect]
     Active Substance: SULFASALAZINE
     Dosage: 5 TABS OD (ONCE DAILY)

REACTIONS (4)
  - Pain [Unknown]
  - Uveitis [Unknown]
  - Musculoskeletal stiffness [Unknown]
  - Spinal pain [Unknown]
